FAERS Safety Report 10935248 (Version 1)
Quarter: 2015Q1

REPORT INFORMATION
  Report Type: Report from Study
  Country: US (occurrence: US)
  Receive Date: 20150320
  Receipt Date: 20150320
  Transmission Date: 20150721
  Serious: Yes (Other)
  Sender: FDA-Public Use
  Company Number: US-ROCHE-1553051

PATIENT
  Age: 82 Year
  Sex: Male

DRUGS (7)
  1. LUCENTIS [Suspect]
     Active Substance: RANIBIZUMAB
     Indication: AGE-RELATED MACULAR DEGENERATION
     Route: 065
  2. ASPIRIN. [Concomitant]
     Active Substance: ASPIRIN
     Route: 048
  3. SIMVASTATIN. [Concomitant]
     Active Substance: SIMVASTATIN
     Indication: BLOOD CHOLESTEROL
     Route: 048
  4. PRESERVISION AREDS [Concomitant]
     Indication: AGE-RELATED MACULAR DEGENERATION
     Route: 048
  5. AVASTIN [Suspect]
     Active Substance: BEVACIZUMAB
     Indication: AGE-RELATED MACULAR DEGENERATION
  6. GENTAMICIN EYE DROPS [Concomitant]
     Route: 048
     Dates: start: 20060620
  7. AVASTIN [Suspect]
     Active Substance: BEVACIZUMAB
     Indication: MACULAR DEGENERATION
     Route: 031
     Dates: start: 20060620, end: 20141216

REACTIONS (2)
  - Off label use [Unknown]
  - Cerebrovascular accident [Unknown]

NARRATIVE: CASE EVENT DATE: 201501
